FAERS Safety Report 21403535 (Version 1)
Quarter: 2022Q4

REPORT INFORMATION
  Report Type: Spontaneous
  Country: CL (occurrence: CL)
  Receive Date: 20221003
  Receipt Date: 20221003
  Transmission Date: 20230113
  Serious: Yes (Other)
  Sender: FDA-Public Use
  Company Number: CL-PFIZER INC-PV202200073570

PATIENT
  Age: 58 Year
  Sex: Male

DRUGS (2)
  1. INLYTA [Suspect]
     Active Substance: AXITINIB
     Indication: Renal cancer metastatic
     Dosage: UNK
     Dates: start: 20190218, end: 202204
  2. INLYTA [Suspect]
     Active Substance: AXITINIB
     Dosage: EVERY 12 HOURS
     Dates: start: 202205, end: 202209

REACTIONS (4)
  - Necrosis [Unknown]
  - Carotid artery occlusion [Unknown]
  - Hypothyroidism [Unknown]
  - Blood pressure increased [Unknown]
